FAERS Safety Report 7949128-X (Version None)
Quarter: 2011Q4

REPORT INFORMATION
  Report Type: 
  Country: None (occurrence: None)
  Receive Date: 20111123
  Receipt Date: 20111114
  Transmission Date: 20120403
  Serious: Yes (Other)
  Sender: FDA-Public Use
  Company Number: DKLU1074733

PATIENT
  Age: 19 Year
  Sex: Male

DRUGS (1)
  1. SABRIL [Suspect]
     Indication: PRODUCT USED FOR UNKNOWN INDICATION

REACTIONS (1)
  - CATARACT OPERATION [None]
